FAERS Safety Report 25721473 (Version 1)
Quarter: 2025Q3

REPORT INFORMATION
  Report Type: Spontaneous
  Country: EU (occurrence: EU)
  Receive Date: 20250825
  Receipt Date: 20250825
  Transmission Date: 20251021
  Serious: Yes (Hospitalization)
  Sender: MYLAN
  Company Number: None

PATIENT
  Age: 87 Year
  Sex: Male
  Weight: 84 kg

DRUGS (5)
  1. AMIODARONE [Suspect]
     Active Substance: AMIODARONE
     Indication: Ventricular extrasystoles
     Dosage: 200 MILLIGRAM, QD, 1 X PER DAY 1 PIECE
     Dates: start: 20240906
  2. CEFTRIAXONE [Concomitant]
     Active Substance: CEFTRIAXONE
  3. TAMSULOSIN HYDROCHLORIDE [Concomitant]
     Active Substance: TAMSULOSIN HYDROCHLORIDE
  4. NADROPARIN [Concomitant]
     Active Substance: NADROPARIN
  5. ACETAMINOPHEN [Concomitant]
     Active Substance: ACETAMINOPHEN

REACTIONS (1)
  - Pneumonia [Not Recovered/Not Resolved]
